FAERS Safety Report 17621025 (Version 1)
Quarter: 2020Q2

REPORT INFORMATION
  Report Type: Spontaneous
  Country: US (occurrence: US)
  Receive Date: 20200403
  Receipt Date: 20200403
  Transmission Date: 20200713
  Serious: Yes (Death, Hospitalization)
  Sender: FDA-Public Use
  Company Number: US-MYLANLABS-2020M1034187

PATIENT
  Age: 32 Year
  Sex: Male

DRUGS (7)
  1. ACTIVATED CHARCOAL. [Suspect]
     Active Substance: ACTIVATED CHARCOAL
     Indication: CHEMICAL POISONING
  2. POTASSIUM PERMANGANATE [Suspect]
     Active Substance: POTASSIUM PERMANGANATE
     Indication: GASTRIC LAVAGE
     Route: 065
  3. DOBUTAMINE [Suspect]
     Active Substance: DOBUTAMINE HYDROCHLORIDE
     Indication: CARDIOGENIC SHOCK
     Dosage: UNK
     Route: 065
  4. ACTIVATED CHARCOAL. [Suspect]
     Active Substance: ACTIVATED CHARCOAL
     Indication: GASTRIC LAVAGE
     Dosage: UNK
     Route: 065
  5. POTASSIUM PERMANGANATE [Suspect]
     Active Substance: POTASSIUM PERMANGANATE
     Indication: CHEMICAL POISONING
  6. SODIUM BICARBONATE. [Suspect]
     Active Substance: SODIUM BICARBONATE
     Indication: CHEMICAL POISONING
     Dosage: UNK
     Route: 042
  7. NOREPINEPHRINE. [Suspect]
     Active Substance: NOREPINEPHRINE
     Indication: CARDIOGENIC SHOCK
     Dosage: UNK
     Route: 065

REACTIONS (1)
  - Drug ineffective [Fatal]
